FAERS Safety Report 15436808 (Version 12)
Quarter: 2019Q3

REPORT INFORMATION
  Report Type: Spontaneous
  Country: US (occurrence: US)
  Receive Date: 20180927
  Receipt Date: 20190723
  Transmission Date: 20191004
  Serious: Yes (Hospitalization)
  Sender: FDA-Public Use
  Company Number: US-ACTELION-A-US2018-179221

PATIENT
  Age: 8 Month
  Sex: Male

DRUGS (9)
  1. REMODULIN [Concomitant]
     Active Substance: TREPROSTINIL
     Dosage: 60 NG/KG, PER MIN
     Dates: start: 201807
  2. DIURIL [Concomitant]
     Active Substance: CHLOROTHIAZIDE
     Dosage: 2.75 ML, BID
     Route: 065
  3. TADALAFIL. [Concomitant]
     Active Substance: TADALAFIL
     Dosage: 1 MG/KG Q24
  4. TRACLEER [Suspect]
     Active Substance: BOSENTAN
     Dosage: 32 MG, BID
     Route: 048
     Dates: start: 20180906
  5. REMODULIN [Concomitant]
     Active Substance: TREPROSTINIL
     Dosage: 42 NG/KG, PER MIN
     Route: 058
     Dates: start: 201808
  6. TRACLEER [Suspect]
     Active Substance: BOSENTAN
     Dosage: 18 MG, BID
     Route: 048
     Dates: start: 20181219
  7. REVATIO [Concomitant]
     Active Substance: SILDENAFIL CITRATE
     Dosage: 11 MG, Q6HRS
     Dates: start: 201801
  8. REVATIO [Concomitant]
     Active Substance: SILDENAFIL CITRATE
     Dosage: 1 MG/KG Q8
     Dates: start: 201807, end: 20190612
  9. TRACLEER [Suspect]
     Active Substance: BOSENTAN
     Indication: PULMONARY ARTERIAL HYPERTENSION
     Dosage: 18 MG, BID
     Route: 048
     Dates: start: 201907

REACTIONS (8)
  - Respiratory failure [Not Recovered/Not Resolved]
  - Colitis [Unknown]
  - Gastrostomy [Unknown]
  - Dyspnoea [Unknown]
  - Device infusion issue [Not Recovered/Not Resolved]
  - Vomiting [Unknown]
  - Oxygen saturation decreased [Unknown]
  - Cardio-respiratory arrest [Unknown]

NARRATIVE: CASE EVENT DATE: 20180917
